FAERS Safety Report 15465033 (Version 3)
Quarter: 2022Q1

REPORT INFORMATION
  Report Type: Spontaneous
  Country: US (occurrence: US)
  Receive Date: 20181004
  Receipt Date: 20220314
  Transmission Date: 20220423
  Serious: Yes (Hospitalization)
  Sender: FDA-Public Use
  Company Number: US-TEVA-2018-US-959912

PATIENT
  Age: 74 Year
  Sex: Male
  Weight: 112.9 kg

DRUGS (17)
  1. TRAZODONE [Suspect]
     Active Substance: TRAZODONE HYDROCHLORIDE
     Indication: Restless legs syndrome
     Dosage: AS NEEDED
     Dates: start: 2015, end: 20180712
  2. INVESTIGATIONAL PRODUCT [Suspect]
     Active Substance: INVESTIGATIONAL PRODUCT
     Indication: Clostridium difficile immunisation
     Dosage: BLINDED, INFORMATION WITHHELD
     Route: 065
     Dates: start: 20180424, end: 20180424
  3. INVESTIGATIONAL PRODUCT [Suspect]
     Active Substance: INVESTIGATIONAL PRODUCT
     Dosage: BLINDED, INFORMATION WITHHELD
     Route: 065
     Dates: start: 20180323, end: 20180323
  4. GABAPENTIN [Suspect]
     Active Substance: GABAPENTIN
     Indication: Neuropathy peripheral
     Dosage: 2400 MILLIGRAM DAILY;
     Route: 048
     Dates: start: 2008
  5. VENLAFAXINE HYDROCHLORIDE [Suspect]
     Active Substance: VENLAFAXINE HYDROCHLORIDE
     Indication: Depression
     Dosage: 150 MILLIGRAM DAILY;
     Route: 048
     Dates: start: 20180123
  6. AMITRIPTYLINE [Suspect]
     Active Substance: AMITRIPTYLINE
     Indication: Depression
     Route: 048
     Dates: start: 2016
  7. OXYBUTYNIN [Suspect]
     Active Substance: OXYBUTYNIN
     Indication: Hypertonic bladder
     Route: 048
     Dates: start: 201712, end: 20180712
  8. PRAMIPEXOLE [Suspect]
     Active Substance: PRAMIPEXOLE
     Indication: Restless legs syndrome
     Dosage: QHS
     Route: 048
     Dates: start: 2003
  9. ALBUTEROL [Concomitant]
     Active Substance: ALBUTEROL
     Dates: start: 2008
  10. ASPIRIN [Concomitant]
     Active Substance: ASPIRIN
     Dates: start: 2000
  11. ATORVASTATIN CALCIUM [Concomitant]
     Active Substance: ATORVASTATIN CALCIUM
     Dates: start: 2016
  12. CENTRUM SILVER+50 [Concomitant]
     Dates: start: 2000
  13. LEXAPRO [Concomitant]
     Active Substance: ESCITALOPRAM OXALATE
     Dates: start: 2010
  14. LOSARTAN [Concomitant]
     Active Substance: LOSARTAN
     Dates: start: 2003
  15. METFORMIN [Concomitant]
     Active Substance: METFORMIN HYDROCHLORIDE
     Dates: start: 2013
  16. HYDROCHLOROTHIAZIDE\TRIAMTERENE [Concomitant]
     Active Substance: HYDROCHLOROTHIAZIDE\TRIAMTERENE
     Dates: start: 2008
  17. WELLBUTRIN [Concomitant]
     Active Substance: BUPROPION HYDROCHLORIDE
     Dates: start: 2013

REACTIONS (2)
  - Encephalopathy [Unknown]
  - Gastrointestinal haemorrhage [Unknown]

NARRATIVE: CASE EVENT DATE: 20180710
